FAERS Safety Report 20231381 (Version 2)
Quarter: 2022Q1

REPORT INFORMATION
  Report Type: Report from Study
  Country: AT (occurrence: AT)
  Receive Date: 20211227
  Receipt Date: 20220208
  Transmission Date: 20220423
  Serious: Yes (Hospitalization)
  Sender: FDA-Public Use
  Company Number: AT-CELLTRION INC.-2021AT017511

PATIENT

DRUGS (21)
  1. TRASTUZUMAB [Suspect]
     Active Substance: TRASTUZUMAB
     Indication: HER2 positive breast cancer
     Dosage: 354 MG EVERY 3 WEEKS (MOST RECENT DOSE PRIOR TO THE EVENT: 27/FEB/2020)
     Route: 041
     Dates: start: 20160629
  2. DOCETAXEL [Suspect]
     Active Substance: DOCETAXEL
     Indication: HER2 positive breast cancer
     Dosage: 75 MG/M2 EVERY 3 WEEKS
     Route: 042
     Dates: start: 20160629, end: 20161013
  3. DENOSUMAB [Suspect]
     Active Substance: DENOSUMAB
     Indication: HER2 positive breast cancer
     Dosage: 120 MG, EVERY 4 WEEKS (MOST RECENT DOSE: 15/SEP/2021)
     Route: 058
     Dates: start: 20161121
  4. RIBOCICLIB [Suspect]
     Active Substance: RIBOCICLIB
     Indication: HER2 positive breast cancer
     Dosage: 600 MG (MOST RECENT DOSE PRIOR TO THE EVENT: 24/OCT/2020)
     Route: 048
     Dates: start: 20200716
  5. LETROZOLE [Suspect]
     Active Substance: LETROZOLE
     Indication: HER2 positive breast cancer
     Dosage: 2.5 MG, EVERY 1 DAY
     Route: 048
     Dates: start: 20161021, end: 20200629
  6. PERTUZUMAB [Suspect]
     Active Substance: PERTUZUMAB
     Indication: HER2 positive breast cancer
     Dosage: 420 MG EVERY 3 WEEKS (MOST RECENT DOSE PRIOR TO THE EVENT: 27/FEB/2020)
     Route: 042
     Dates: start: 20160629
  7. FULVESTRANT [Suspect]
     Active Substance: FULVESTRANT
     Indication: HER2 positive breast cancer
     Dosage: 500 MG, EVERY 4 WEEKS
     Route: 058
     Dates: start: 20200716
  8. NEBIVOLOL HYDROCHLORIDE [Concomitant]
     Active Substance: NEBIVOLOL HYDROCHLORIDE
     Dosage: ONGOING = CHECKED
     Dates: start: 20170115
  9. AMPICILLIN [Concomitant]
     Active Substance: AMPICILLIN
     Indication: Osteonecrosis of jaw
     Dosage: UNK
     Dates: start: 20210915, end: 20210915
  10. OSPEN [PHENOXYMETHYLPENICILLIN] [Concomitant]
     Indication: Osteonecrosis of jaw
     Dosage: ONGOING = CHECKED
     Dates: start: 20210114
  11. LISINOPRIL [Concomitant]
     Active Substance: LISINOPRIL
     Dosage: ONGOING = CHECKED
     Dates: start: 20170115
  12. BETAISODONA [Concomitant]
     Active Substance: POVIDONE-IODINE
     Indication: Paronychia
     Dosage: ONGOING = CHECKED
     Dates: start: 20201111
  13. ENOXAPARIN SODIUM [Concomitant]
     Active Substance: ENOXAPARIN SODIUM
     Dosage: UNK
     Dates: start: 20210915, end: 20210915
  14. EUTHYROX [Concomitant]
     Active Substance: LEVOTHYROXINE SODIUM
     Dosage: ONGOING = CHECKED
     Dates: start: 20210223
  15. DIPRODERM [BETAMETHASONE DIPROPIONATE] [Concomitant]
     Indication: Rash
     Dosage: ONGOING = CHECKED
     Dates: start: 20180621
  16. METHYLPREDNISOLONE ACEPONATE [Concomitant]
     Active Substance: METHYLPREDNISOLONE ACEPONATE
     Indication: Palmar-plantar erythrodysaesthesia syndrome
     Dosage: ONGOING = CHECKED
     Dates: start: 20201111
  17. ASPIRIN [Concomitant]
     Active Substance: ASPIRIN
     Dosage: ONGOING = CHECKED
     Dates: start: 20170115
  18. AMOXICILLIN\CLAVULANATE POTASSIUM [Concomitant]
     Active Substance: AMOXICILLIN\CLAVULANATE POTASSIUM
     Indication: Osteonecrosis of jaw
     Dosage: UNK
     Dates: start: 20210915
  19. NOVALGIN (METAMIZOLE SODIUM) [Concomitant]
     Active Substance: METAMIZOLE SODIUM
     Indication: Osteonecrosis of jaw
     Dosage: UNK
     Dates: start: 20210915, end: 20210915
  20. ELO MEL [Concomitant]
     Dosage: UNK
     Dates: start: 20210908, end: 20210908
  21. MICRO-KALIUM [Concomitant]

REACTIONS (3)
  - Hypercalcaemia [Recovered/Resolved]
  - Pain [Recovering/Resolving]
  - Off label use [Unknown]

NARRATIVE: CASE EVENT DATE: 20210915
